FAERS Safety Report 25007107 (Version 2)
Quarter: 2025Q1

REPORT INFORMATION
  Report Type: Spontaneous
  Country: CA (occurrence: CA)
  Receive Date: 20250225
  Receipt Date: 20250311
  Transmission Date: 20250409
  Serious: Yes (Other)
  Sender: CELLTRION
  Company Number: CA-CELLTRION INC.-2025CA005340

PATIENT

DRUGS (2)
  1. INFLIXIMAB [Suspect]
     Active Substance: INFLIXIMAB
     Indication: Crohn^s disease
     Dosage: 120 MG EVERY 14 DAYS
     Route: 058
     Dates: start: 20241210
  2. INFLIXIMAB [Suspect]
     Active Substance: INFLIXIMAB
     Dosage: 240 MG, EOW

REACTIONS (5)
  - Haematochezia [Unknown]
  - Rectal prolapse [Unknown]
  - Abdominal pain [Unknown]
  - Drug effect less than expected [Unknown]
  - Intentional product use issue [Unknown]
